FAERS Safety Report 21979663 (Version 3)
Quarter: 2023Q1

REPORT INFORMATION
  Report Type: Report from Study
  Country: DE (occurrence: None)
  Receive Date: 20230210
  Receipt Date: 20230227
  Transmission Date: 20230417
  Serious: Yes (Life-Threatening, Hospitalization)
  Sender: FDA-Public Use
  Company Number: 2023A032682

PATIENT
  Age: 61 Year
  Sex: Female
  Weight: 68 kg

DRUGS (4)
  1. DURVALUMAB\TREMELIMUMAB [Suspect]
     Active Substance: DURVALUMAB\TREMELIMUMAB
     Indication: Biliary tract disorder
     Route: 042
     Dates: start: 20221130, end: 20230126
  2. DURVALUMAB\TREMELIMUMAB [Suspect]
     Active Substance: DURVALUMAB\TREMELIMUMAB
     Indication: Biliary tract disorder
     Route: 042
     Dates: start: 20221130, end: 20221130
  3. LOPERAMIDE [Concomitant]
     Active Substance: LOPERAMIDE
  4. ACESULFAME POTASSIUM/ASPARTAME [Concomitant]

REACTIONS (1)
  - Autoimmune disorder [Recovering/Resolving]

NARRATIVE: CASE EVENT DATE: 20230204
